FAERS Safety Report 7021495-3 (Version None)
Quarter: 2010Q3

REPORT INFORMATION
  Report Type: 
  Country: None (occurrence: None)
  Receive Date: 20100928
  Receipt Date: 20100915
  Transmission Date: 20110219
  Serious: Yes (Other)
  Sender: FDA-Public Use
  Company Number: NSR_00105_2010

PATIENT
  Sex: Male
  Weight: 74.8435 kg

DRUGS (1)
  1. FLUOXETINE [Suspect]
     Indication: DEPRESSION
     Dosage: (40 MG BID ORAL)
     Route: 048
     Dates: start: 20100716, end: 20100730

REACTIONS (4)
  - CHEST PAIN [None]
  - DYSPEPSIA [None]
  - INFLUENZA LIKE ILLNESS [None]
  - PSYCHOTIC DISORDER [None]
